FAERS Safety Report 7880499-9 (Version None)
Quarter: 2011Q4

REPORT INFORMATION
  Report Type: 
  Country: None (occurrence: None)
  Receive Date: 20111101
  Receipt Date: 20111026
  Transmission Date: 20120403
  Serious: Yes (Death)
  Sender: FDA-Public Use
  Company Number: PHHY2011US95921

PATIENT
  Age: 19 Year
  Sex: Female

DRUGS (7)
  1. VINCRISTINE [Concomitant]
  2. ETOPOSIDE [Concomitant]
  3. CYCLOPHOSPHAMIDE [Concomitant]
  4. CYCLOSPORINE [Suspect]
     Indication: PROPHYLAXIS AGAINST GRAFT VERSUS HOST DISEASE
  5. DOXORUBICIN HCL [Concomitant]
  6. PREDNISONE [Concomitant]
  7. RADIOTHERAPY [Concomitant]

REACTIONS (2)
  - EWING'S SARCOMA RECURRENT [None]
  - CONCOMITANT DISEASE PROGRESSION [None]
